FAERS Safety Report 7367712-1 (Version None)
Quarter: 2011Q1

REPORT INFORMATION
  Report Type: 
  Country: None (occurrence: None)
  Receive Date: 20110311
  Receipt Date: 20110218
  Transmission Date: 20110831
  Serious: Yes (Life-Threatening, Hospitalization)
  Sender: FDA-Public Use
  Company Number: CA201008008139

PATIENT
  Age: 36 Year
  Sex: Female
  Weight: 82.8 kg

DRUGS (17)
  1. RADIATION (RADIATION) UNKNOWN [Suspect]
     Indication: NON-SMALL CELL LUNG CANCER STAGE III
     Dosage: 6600 D/F, OTHER;
     Dates: start: 20100510, end: 20100624
  2. LORAZEPAM [Concomitant]
  3. HYDROMORPHONE (HYDROMORPHONE) [Concomitant]
  4. GRAVOL (DIMENHYDRINATE) [Concomitant]
  5. SENOKOT (SENNA ALEXANDRINA) [Concomitant]
  6. FENTANYL [Suspect]
  7. PROCHLORPERAZINE MALEATE [Concomitant]
  8. FOLIC ACID [Concomitant]
  9. LOSEC (OMEPRAZOLE SODIUM) [Concomitant]
  10. VITAMIN B12 [Concomitant]
  11. ETOPOSIDE [Suspect]
     Indication: NON-SMALL CELL LUNG CANCER STAGE III
     Dosage: 110 MG, OTHER; INTRAVENOUS
     Route: 042
     Dates: start: 20100510, end: 20100611
  12. ETOPOSIDE [Suspect]
     Indication: NON-SMALL CELL LUNG CANCER STAGE III
     Dosage: 110 MG, OTHER; INTRAVENOUS
     Route: 042
     Dates: start: 20100719, end: 20100723
  13. CISPLATIN [Suspect]
     Indication: NON-SMALL CELL LUNG CANCER STAGE III
     Dosage: 110 MG, OTHER; INTRAVENOUS
     Route: 042
     Dates: start: 20100719, end: 20100726
  14. CISPLATIN [Suspect]
     Indication: NON-SMALL CELL LUNG CANCER STAGE III
     Dosage: 110 MG, OTHER; INTRAVENOUS
     Route: 042
     Dates: start: 20100510, end: 20100614
  15. DEXAMETHASONE (DEXAMETHASONE) [Concomitant]
  16. COLACE (DOCUSATE SODIUM) [Concomitant]
  17. ONDANSETRON [Concomitant]

REACTIONS (11)
  - BRONCHOPLEURAL FISTULA [None]
  - RADIATION FIBROSIS - LUNG [None]
  - TUMOUR NECROSIS [None]
  - PNEUMONIA [None]
  - OESOPHAGITIS [None]
  - METASTASES TO LYMPH NODES [None]
  - HAEMOPTYSIS [None]
  - HAEMOGLOBIN DECREASED [None]
  - PULMONARY CAVITATION [None]
  - METASTASES TO BONE [None]
  - RADIATION DYSPHAGIA [None]
